FAERS Safety Report 10356973 (Version 1)
Quarter: 2014Q3

REPORT INFORMATION
  Report Type: Spontaneous
  Country: JP (occurrence: JP)
  Receive Date: 20140801
  Receipt Date: 20140801
  Transmission Date: 20150326
  Serious: Yes (Death, Other)
  Sender: FDA-Public Use
  Company Number: PHHY2014JP092091

PATIENT
  Sex: Male
  Weight: 107 kg

DRUGS (3)
  1. LEVOTOMIN [Suspect]
     Active Substance: LEVOMEPROMAZINE
  2. PROMETHAZINE [Suspect]
     Active Substance: PROMETHAZINE\PROMETHAZINE HYDROCHLORIDE
  3. ETHANOL [Suspect]
     Active Substance: ALCOHOL

REACTIONS (5)
  - Depressed level of consciousness [Fatal]
  - Pulmonary congestion [Unknown]
  - Overdose [Unknown]
  - Contusion [Unknown]
  - Skin abrasion [Unknown]
